FAERS Safety Report 21524778 (Version 2)
Quarter: 2023Q1

REPORT INFORMATION
  Report Type: Spontaneous
  Country: US (occurrence: US)
  Receive Date: 20221030
  Receipt Date: 20230216
  Transmission Date: 20230417
  Serious: No
  Sender: FDA-Public Use
  Company Number: US-SA-SAC20221024000381

PATIENT
  Sex: Male
  Weight: 95.238 kg

DRUGS (10)
  1. DUPIXENT [Suspect]
     Active Substance: DUPILUMAB
     Indication: Dermatitis allergic
     Dosage: 600 MG, 1X
     Route: 058
     Dates: start: 20220728, end: 20220728
  2. DUPIXENT [Suspect]
     Active Substance: DUPILUMAB
     Indication: Dermatitis atopic
     Dosage: 300 MG, QOW
     Route: 058
     Dates: start: 202208
  3. DESOWEN [Concomitant]
     Active Substance: DESONIDE
     Dosage: APPLY THIN LAYER TWICE DAILY TO RASH ON FACE AND SKIN FOLDS.
     Route: 061
  4. HYDROXYZINE PAMOATE [Concomitant]
     Active Substance: HYDROXYZINE PAMOATE
     Dosage: 25 MG, PRN
     Route: 048
  5. BACTROBAN [Concomitant]
     Active Substance: MUPIROCIN\MUPIROCIN CALCIUM
     Dosage: APPLY TO AFFECTED AREA 2 (TWO) TIMES A DAY APPLY THIN LAYER TO TO OPEN AREAS ON THE LEGS/FEET
     Route: 061
  6. KENALOG [Concomitant]
     Active Substance: TRIAMCINOLONE ACETONIDE
     Indication: Rash
     Dosage: APPLY THIN LAYER TWICE DAILY TO RASH ON TRUNK, ARMS, LEGS. AVOID FACE AND SKIN FOLDS
  7. LIDEX [Concomitant]
     Active Substance: FLUOCINONIDE
     Dosage: UNK
  8. XYZAL [Concomitant]
     Active Substance: LEVOCETIRIZINE DIHYDROCHLORIDE
     Route: 048
  9. SINGULAIR [Concomitant]
     Active Substance: MONTELUKAST SODIUM
     Dosage: UNK
  10. BACTROBAN [Concomitant]
     Active Substance: MUPIROCIN\MUPIROCIN CALCIUM
     Dosage: UNK
     Route: 061

REACTIONS (1)
  - Dry eye [Recovered/Resolved]
